FAERS Safety Report 13581064 (Version 4)
Quarter: 2018Q2

REPORT INFORMATION
  Report Type: Spontaneous
  Country: US (occurrence: US)
  Receive Date: 20170525
  Receipt Date: 20180507
  Transmission Date: 20180711
  Serious: No
  Sender: FDA-Public Use
  Company Number: US-PFIZER INC-2017229021

PATIENT
  Age: 48 Year
  Sex: Female

DRUGS (10)
  1. TAXOTERE [Suspect]
     Active Substance: DOCETAXEL
     Indication: CHEMOTHERAPY
     Dosage: 80 MG VITAL 150 MG, EVERY 3 WEEKS, THREE CYCLES
     Dates: start: 20141203, end: 20150114
  2. LOPRESSOR [Concomitant]
     Active Substance: METOPROLOL TARTRATE
     Dosage: 50 MG, UNK
  3. NEXIUM [Concomitant]
     Active Substance: ESOMEPRAZOLE MAGNESIUM
     Dosage: UNK
  4. DOCEFREZ [Suspect]
     Active Substance: DOCETAXEL ANHYDROUS
     Dosage: UNK
  5. DOCETAXEL. [Suspect]
     Active Substance: DOCETAXEL
     Dosage: 80 MG VITAL 150 MG, EVERY 3 WEEKS, THREE CYCLES
     Dates: start: 20141203, end: 20150114
  6. TAXOTERE [Suspect]
     Active Substance: DOCETAXEL
     Indication: BREAST CANCER FEMALE
  7. PARAPLATIN [Concomitant]
     Active Substance: CARBOPLATIN
     Indication: CHEMOTHERAPY
     Dosage: UNK
  8. HCTZ [Concomitant]
     Active Substance: HYDROCHLOROTHIAZIDE
     Dosage: 12.5 MG, UNK
  9. ATIVAN [Concomitant]
     Active Substance: LORAZEPAM
     Dosage: UNK
  10. DOCETAXEL. [Suspect]
     Active Substance: DOCETAXEL
     Dosage: UNK

REACTIONS (5)
  - Alopecia [Not Recovered/Not Resolved]
  - Hair texture abnormal [Not Recovered/Not Resolved]
  - Hair disorder [Not Recovered/Not Resolved]
  - Hair colour changes [Not Recovered/Not Resolved]
  - Madarosis [Not Recovered/Not Resolved]

NARRATIVE: CASE EVENT DATE: 201506
